FAERS Safety Report 8935834 (Version 1)
Quarter: 2012Q4

REPORT INFORMATION
  Report Type: Report from Study
  Country: US (occurrence: US)
  Receive Date: 20121130
  Receipt Date: 20121130
  Transmission Date: 20130627
  Serious: Yes (Hospitalization)
  Sender: FDA-Public Use
  Company Number: US-ABBOTT-12P-163-1011942-00

PATIENT
  Age: 69 None
  Sex: Female
  Weight: 98.06 kg

DRUGS (9)
  1. HUMIRA [Suspect]
     Indication: RHEUMATOID ARTHRITIS
  2. CORTEF [Concomitant]
     Indication: ADDISON^S DISEASE
  3. JANUVIA [Concomitant]
     Indication: DIABETES MELLITUS
  4. VITAMIN D [Concomitant]
     Indication: VITAMIN SUPPLEMENTATION
  5. SIMVASTATIN [Concomitant]
     Indication: BLOOD CHOLESTEROL INCREASED
  6. CARDIZEM CD [Concomitant]
     Indication: HYPERTENSION
  7. LISINOPRIL [Concomitant]
     Indication: HYPERTENSION
  8. CALCIUM [Concomitant]
     Indication: MINERAL SUPPLEMENTATION
  9. FLAGYL [Concomitant]
     Indication: CLOSTRIDIAL INFECTION
     Dates: start: 20121121

REACTIONS (14)
  - Spinal fracture [Recovered/Resolved]
  - Back disorder [Not Recovered/Not Resolved]
  - Post procedural complication [Recovered/Resolved]
  - Fall [Recovered/Resolved]
  - Pelvic fracture [Recovered/Resolved]
  - Rib fracture [Recovered/Resolved]
  - Sternal fracture [Recovered/Resolved]
  - Colitis ischaemic [Recovered/Resolved]
  - Back pain [Not Recovered/Not Resolved]
  - Rheumatoid arthritis [Not Recovered/Not Resolved]
  - Influenza [Recovered/Resolved]
  - Pain in extremity [Not Recovered/Not Resolved]
  - Arthralgia [Not Recovered/Not Resolved]
  - Cystitis [Not Recovered/Not Resolved]
